FAERS Safety Report 13903431 (Version 1)
Quarter: 2017Q3

REPORT INFORMATION
  Report Type: Spontaneous
  Country: DE (occurrence: DE)
  Receive Date: 20170824
  Receipt Date: 20170824
  Transmission Date: 20171127
  Serious: Yes (Hospitalization, Other)
  Sender: FDA-Public Use
  Company Number: DE-BRISTOL-MYERS SQUIBB COMPANY-BMS-2017-075315

PATIENT
  Age: 80 Year
  Sex: Male

DRUGS (11)
  1. METRONIDAZOLE. [Concomitant]
     Active Substance: METRONIDAZOLE
     Indication: PNEUMONIA
     Dosage: 500 MG, UNK
     Route: 042
     Dates: start: 20170727
  2. COTRIM [Concomitant]
     Active Substance: SULFAMETHOXAZOLE\TRIMETHOPRIM
     Indication: PRODUCT USED FOR UNKNOWN INDICATION
     Dosage: 960 MG, BID
     Route: 065
     Dates: start: 20170803
  3. PANTOPRAZOLE [Concomitant]
     Active Substance: PANTOPRAZOLE
     Indication: PRODUCT USED FOR UNKNOWN INDICATION
     Dosage: 20 MG, UNK
     Route: 048
  4. PANTOZOL [Concomitant]
     Active Substance: PANTOPRAZOLE SODIUM
     Indication: PRODUCT USED FOR UNKNOWN INDICATION
     Dosage: 40 MG, QD
     Route: 065
  5. ABILIFY MAINTENA [Interacting]
     Active Substance: ARIPIPRAZOLE
     Indication: BIPOLAR DISORDER
     Dosage: 400 MG, QMO
     Route: 030
  6. CLEXANE [Concomitant]
     Active Substance: ENOXAPARIN SODIUM
     Indication: PRODUCT USED FOR UNKNOWN INDICATION
     Dosage: 0.6 MG, BID
     Route: 065
  7. CLARITHROMYCIN. [Interacting]
     Active Substance: CLARITHROMYCIN
     Indication: PNEUMONIA
     Dosage: 500 MG, TID
     Route: 048
  8. AMLODIPINE [Concomitant]
     Active Substance: AMLODIPINE BESYLATE
     Indication: HYPERTENSION
     Dosage: 5 MG, BID
     Route: 065
  9. ABILIFY [Suspect]
     Active Substance: ARIPIPRAZOLE
     Indication: PRODUCT USED FOR UNKNOWN INDICATION
     Dosage: 1 UNK, UNK
     Route: 065
  10. METRONIDAZOLE. [Concomitant]
     Active Substance: METRONIDAZOLE
     Indication: PRODUCT USED FOR UNKNOWN INDICATION
     Dosage: 1500 MG, UNK
     Route: 042
  11. BELOC                              /00376903/ [Concomitant]
     Active Substance: METOPROLOL TARTRATE
     Indication: CARDIAC FAILURE
     Dosage: 23.7 MG, UNK
     Route: 048

REACTIONS (14)
  - Bradycardia [Unknown]
  - Pneumonia [Not Recovered/Not Resolved]
  - Hypothermia [Not Recovered/Not Resolved]
  - Circumstance or information capable of leading to medication error [Unknown]
  - General physical health deterioration [Not Recovered/Not Resolved]
  - Stupor [Not Recovered/Not Resolved]
  - Long QT syndrome [Unknown]
  - Heart rate abnormal [Unknown]
  - Neuroleptic malignant syndrome [Unknown]
  - Somnolence [Not Recovered/Not Resolved]
  - Respiratory acidosis [Unknown]
  - Respiratory tract congestion [Unknown]
  - Drug interaction [Unknown]
  - Hypertension [Unknown]

NARRATIVE: CASE EVENT DATE: 20170726
